FAERS Safety Report 9123289 (Version 1)
Quarter: 2013Q1

REPORT INFORMATION
  Report Type: Spontaneous
  Country: CR (occurrence: CR)
  Receive Date: 20130115
  Receipt Date: 20130115
  Transmission Date: 20140127
  Serious: Yes (Death)
  Sender: FDA-Public Use
  Company Number: CR-PFIZER INC-2013016289

PATIENT
  Age: 89 Year
  Sex: Male

DRUGS (1)
  1. ALTRULINE [Suspect]
     Dosage: 50 MG, UNK

REACTIONS (2)
  - Renal failure [Fatal]
  - Cerebrovascular accident [Fatal]
